FAERS Safety Report 7730211-9 (Version None)
Quarter: 2011Q3

REPORT INFORMATION
  Report Type: 
  Country: None (occurrence: None)
  Receive Date: 20110906
  Receipt Date: 20110901
  Transmission Date: 20111222
  Serious: No
  Sender: FDA-Public Use
  Company Number: PHHY2010US23819

PATIENT
  Sex: Male

DRUGS (8)
  1. SIMVASTATIN [Concomitant]
     Dosage: 80 MG, UNK
  2. IBUPROFEN [Concomitant]
  3. SPRYCEL [Suspect]
  4. OMEPRAZOLE [Concomitant]
     Dosage: 20 MG, DAILY
  5. GLEEVEC [Suspect]
     Indication: CHRONIC MYELOID LEUKAEMIA
     Dosage: 400  MG,
     Route: 048
     Dates: start: 20090701
  6. DIOVAN [Concomitant]
  7. GLEEVEC [Suspect]
     Dosage: 300 MG, BID
  8. TASIGNA [Suspect]

REACTIONS (3)
  - HEPATIC ENZYME INCREASED [None]
  - DRUG INEFFECTIVE [None]
  - THERAPEUTIC RESPONSE UNEXPECTED [None]
